FAERS Safety Report 17746902 (Version 1)
Quarter: 2020Q2

REPORT INFORMATION
  Report Type: Spontaneous
  Country: US (occurrence: US)
  Receive Date: 20200505
  Receipt Date: 20200505
  Transmission Date: 20200714
  Serious: Yes (Hospitalization)
  Sender: FDA-Public Use
  Company Number: US-AMERICAN REGENT INC-2020000966

PATIENT
  Age: 38 Year
  Sex: Female

DRUGS (1)
  1. MANGANESE SULFATE INJECTION, USP (6410-25) [Suspect]
     Active Substance: MANGANESE SULFATE
     Indication: PRODUCT USED FOR UNKNOWN INDICATION
     Dosage: ESTIMATED CONCENTRATION OF 1-35 UG PER 2 L
     Route: 051

REACTIONS (2)
  - Toxic encephalopathy [Recovering/Resolving]
  - Product preparation error [Recovered/Resolved]
